FAERS Safety Report 5659627-1 (Version None)
Quarter: 2008Q1

REPORT INFORMATION
  Report Type: 
  Country: None (occurrence: None)
  Receive Date: 20080310
  Receipt Date: 20080310
  Transmission Date: 20080703
  Serious: Yes (Other)
  Sender: FDA-Public Use
  Company Number: None

PATIENT
  Age: 83 Year
  Sex: Female
  Weight: 58.9676 kg

DRUGS (2)
  1. ALBUTEROL [Suspect]
     Indication: ASTHMA
     Dosage: 1 PUFF 4 TIMES A DAY AS NEEDED I TOOK ONLY ONE A OTHER
     Route: 050
     Dates: start: 20080220, end: 20080227
  2. ALBUTEROL [Suspect]
     Indication: BRONCHITIS CHRONIC
     Dosage: 1 PUFF 4 TIMES A DAY AS NEEDED I TOOK ONLY ONE A OTHER
     Route: 050
     Dates: start: 20080220, end: 20080227

REACTIONS (5)
  - DYSPNOEA [None]
  - HEADACHE [None]
  - LOSS OF CONSCIOUSNESS [None]
  - NAUSEA [None]
  - PHARMACEUTICAL PRODUCT COMPLAINT [None]
